FAERS Safety Report 15700875 (Version 1)
Quarter: 2018Q4

REPORT INFORMATION
  Report Type: Spontaneous
  Country: US (occurrence: US)
  Receive Date: 20181207
  Receipt Date: 20181207
  Transmission Date: 20190205
  Serious: No
  Sender: FDA-Public Use
  Company Number: US-JUBILANT CADISTA PHARMACEUTICALS-2018JUB00088

PATIENT
  Age: 39 Year
  Sex: Female
  Weight: 72.56 kg

DRUGS (5)
  1. METHYLPREDNISOLONE. [Suspect]
     Active Substance: METHYLPREDNISOLONE
     Indication: AUTOIMMUNE DISORDER
  2. COPAXONE [Concomitant]
     Active Substance: GLATIRAMER ACETATE
  3. BIOTIN [Concomitant]
     Active Substance: BIOTIN
  4. UNSPECIFIED MULTIVITAMIN [Concomitant]
  5. METHYLPREDNISOLONE. [Suspect]
     Active Substance: METHYLPREDNISOLONE
     Indication: PARAESTHESIA
     Dosage: UNK, AS DIRECTED ON PACKET
     Route: 048
     Dates: start: 201803, end: 201803

REACTIONS (1)
  - Drug ineffective [Recovered/Resolved]

NARRATIVE: CASE EVENT DATE: 201803
